FAERS Safety Report 8851975 (Version 1)
Quarter: 2012Q4

REPORT INFORMATION
  Report Type: 
  Country: US (occurrence: US)
  Receive Date: 20121022
  Receipt Date: 20121022
  Transmission Date: 20130627
  Serious: No
  Sender: FDA-Public Use
  Company Number: US-TEVA-365141USA

PATIENT
  Sex: Female

DRUGS (2)
  1. PROAIR HFA [Suspect]
     Route: 055
  2. ANTIBIOTICS [Interacting]

REACTIONS (3)
  - Drug interaction [Unknown]
  - Drug interaction [Unknown]
  - Therapeutic response unexpected [Unknown]
